FAERS Safety Report 9238558 (Version 1)
Quarter: 2013Q2

REPORT INFORMATION
  Report Type: Spontaneous
  Country: US (occurrence: None)
  Receive Date: 20130416
  Receipt Date: 20130416
  Transmission Date: 20140414
  Serious: Yes (Other)
  Sender: FDA-Public Use
  Company Number: SYM-2013-02809

PATIENT
  Age: 69 Year
  Sex: Female

DRUGS (1)
  1. XENAZINE (TETRABENAZINE) (12.5 MILLIGRAM, TABLETS) (TETRABENAZINE) [Suspect]
     Indication: HUNTINGTON^S DISEASE
     Route: 048
     Dates: start: 20130103, end: 20130320

REACTIONS (7)
  - Diarrhoea [None]
  - Fatigue [None]
  - Tongue disorder [None]
  - Insomnia [None]
  - Anxiety [None]
  - Depression [None]
  - Trismus [None]
